FAERS Safety Report 9049473 (Version 1)
Quarter: 2013Q1

REPORT INFORMATION
  Report Type: Spontaneous
  Country: JP (occurrence: JP)
  Receive Date: 20130205
  Receipt Date: 20130205
  Transmission Date: 20140127
  Serious: Yes (Life-Threatening)
  Sender: FDA-Public Use
  Company Number: JP-GLAXOSMITHKLINE-B0850964A

PATIENT
  Age: 83 None
  Sex: Female
  Weight: 38 kg

DRUGS (9)
  1. ARIXTRA [Suspect]
     Indication: THROMBOSIS PROPHYLAXIS
     Dosage: 2.5MG PER DAY
     Route: 058
     Dates: start: 20120825, end: 20120902
  2. MUCOSTA [Concomitant]
     Route: 065
  3. LOXONIN [Concomitant]
     Route: 065
  4. ALDACTONE A [Concomitant]
     Dosage: 1IUAX PER DAY
     Route: 048
  5. FUROSEMIDE [Concomitant]
     Dosage: 1IUAX PER DAY
     Route: 048
  6. SIGMART [Concomitant]
     Dosage: 1IUAX THREE TIMES PER DAY
     Route: 048
  7. VASOLAN [Concomitant]
     Dosage: 1IUAX THREE TIMES PER DAY
     Route: 048
  8. ADALAT L [Concomitant]
     Dosage: 1IUAX THREE TIMES PER DAY
     Route: 048
  9. BAYASPIRIN [Concomitant]
     Dosage: 1IUAX PER DAY
     Route: 048

REACTIONS (3)
  - Renal failure acute [Recovered/Resolved]
  - Haematoma [Recovered/Resolved]
  - Local swelling [Unknown]
